FAERS Safety Report 8760944 (Version 2)
Quarter: 2012Q4

REPORT INFORMATION
  Report Type: 
  Country: US (occurrence: US)
  Receive Date: 20120830
  Receipt Date: 20121016
  Transmission Date: 20130627
  Serious: Yes (Other)
  Sender: FDA-Public Use
  Company Number: PHEH2012US016769

PATIENT

DRUGS (1)
  1. VIVELLE DOT [Suspect]
     Dosage: 0.037 mg, UNK

REACTIONS (4)
  - Heart rate irregular [Unknown]
  - Syncope [Unknown]
  - Product adhesion issue [Unknown]
  - Dizziness [Unknown]
